FAERS Safety Report 6717158-1 (Version None)
Quarter: 2010Q2

REPORT INFORMATION
  Report Type: 
  Country: None (occurrence: None)
  Receive Date: 20100510
  Receipt Date: 20100426
  Transmission Date: 20101027
  Serious: Yes (Other)
  Sender: FDA-Public Use
  Company Number: PHHY2010US24249

PATIENT
  Sex: Female
  Weight: 73.56 kg

DRUGS (12)
  1. GLEEVEC [Suspect]
     Indication: CHRONIC MYELOID LEUKAEMIA
     Dosage: 800 MG DAILY
     Route: 048
     Dates: start: 20051220
  2. GLEEVEC [Suspect]
     Dosage: 400 MG, QD
     Route: 048
  3. HYDROCHLOROTHIAZIDE [Concomitant]
     Dosage: 12.5 MG DAILY
  4. LOTREL [Concomitant]
     Dosage: UNK
  5. METFORMIN HYDROCHLORIDE [Concomitant]
     Dosage: 500 MG DAILY
  6. ASPIRIN [Concomitant]
  7. ARANESP [Concomitant]
  8. MIRTAZAPINE [Concomitant]
  9. MULTI-VITAMINS [Concomitant]
  10. MIRAPHEN [Concomitant]
  11. CLONAZEPAM [Concomitant]
  12. HYDREA [Concomitant]

REACTIONS (27)
  - BLOOD ALBUMIN DECREASED [None]
  - BLOOD GLUCOSE INCREASED [None]
  - BLOOD SODIUM DECREASED [None]
  - BODY TEMPERATURE INCREASED [None]
  - BOWEL MOVEMENT IRREGULARITY [None]
  - BURNING SENSATION [None]
  - CONSTIPATION [None]
  - EYE OPERATION [None]
  - GAIT DISTURBANCE [None]
  - HAEMATOCRIT DECREASED [None]
  - HAEMOGLOBIN DECREASED [None]
  - HEADACHE [None]
  - HERPES ZOSTER [None]
  - HOT FLUSH [None]
  - HYPERHIDROSIS [None]
  - MEAN CELL VOLUME ABNORMAL [None]
  - MEAN CELL VOLUME DECREASED [None]
  - MUSCLE TWITCHING [None]
  - NASAL CONGESTION [None]
  - NAUSEA [None]
  - RADICULAR PAIN [None]
  - RASH [None]
  - RED BLOOD CELL COUNT DECREASED [None]
  - SPINAL CORD COMPRESSION [None]
  - VISUAL ACUITY REDUCED [None]
  - VOMITING [None]
  - WHITE BLOOD CELL COUNT DECREASED [None]
